FAERS Safety Report 9638262 (Version 5)
Quarter: 2014Q1

REPORT INFORMATION
  Report Type: Spontaneous
  Country: DK (occurrence: DK)
  Receive Date: 20131022
  Receipt Date: 20140226
  Transmission Date: 20141002
  Serious: Yes (Death)
  Sender: FDA-Public Use
  Company Number: DK-ABBVIE-13P-044-1159534-00

PATIENT
  Age: 44 Year
  Sex: Male
  Weight: 89 kg

DRUGS (3)
  1. HUMIRA [Suspect]
     Indication: PSORIASIS
     Dosage: 80 MG AS LOADING DOSE.
     Route: 058
     Dates: start: 20131007
  2. METEX [Concomitant]
     Indication: PSORIASIS
     Dates: start: 20130128
  3. METEX [Concomitant]
     Indication: PSORIATIC ARTHROPATHY

REACTIONS (7)
  - Cardiac arrest [Fatal]
  - Small intestinal haemorrhage [Fatal]
  - Gastric haemorrhage [Fatal]
  - Gastritis [Fatal]
  - Injection site haemorrhage [Unknown]
  - Puncture site haemorrhage [Unknown]
  - Arrhythmia [Fatal]
